FAERS Safety Report 5239983-9 (Version None)
Quarter: 2007Q1

REPORT INFORMATION
  Report Type: 
  Country: None (occurrence: None)
  Receive Date: 20070216
  Receipt Date: 20070208
  Transmission Date: 20070707
  Serious: Yes (Hospitalization, Other)
  Sender: FDA-Public Use
  Company Number: US-PFIZER INC-2007000330

PATIENT
  Sex: Female
  Weight: 56.7 kg

DRUGS (10)
  1. DETROL LA [Suspect]
     Indication: URGE INCONTINENCE
     Route: 048
  2. VESICARE [Suspect]
     Indication: URGE INCONTINENCE
  3. NORVASC [Concomitant]
  4. SYNTHROID [Concomitant]
  5. ACIPHEX [Concomitant]
  6. ACTONEL [Concomitant]
  7. MAXZIDE [Concomitant]
  8. MESTINON [Concomitant]
  9. OPHTHALMOLOGICALS [Concomitant]
  10. ASPIRIN [Concomitant]

REACTIONS (3)
  - GLAUCOMA [None]
  - RASH GENERALISED [None]
  - URTICARIA [None]
